FAERS Safety Report 15754499 (Version 3)
Quarter: 2021Q3

REPORT INFORMATION
  Report Type: Report from Study
  Country: FR (occurrence: FR)
  Receive Date: 20181224
  Receipt Date: 20210820
  Transmission Date: 20211014
  Serious: Yes (Death, Other)
  Sender: FDA-Public Use
  Company Number: FR-AUROBINDO-AUR-APL-2018-061750

PATIENT
  Age: 45 Year
  Sex: Male

DRUGS (8)
  1. ZYPREXA [Suspect]
     Active Substance: OLANZAPINE
     Indication: PRODUCT USED FOR UNKNOWN INDICATION
     Dosage: UNK
     Route: 065
  2. OLANZAPINE TABLET [Suspect]
     Active Substance: OLANZAPINE
     Indication: PRODUCT USED FOR UNKNOWN INDICATION
     Dosage: 1 DOSAGE FORM, DAILY
     Route: 065
  3. LYSANXIA [Suspect]
     Active Substance: PRAZEPAM
     Indication: PRODUCT USED FOR UNKNOWN INDICATION
     Dosage: 10 MILLIGRAM, ONCE A DAY
     Route: 065
  4. OXAZEPAM. [Suspect]
     Active Substance: OXAZEPAM
     Indication: PRODUCT USED FOR UNKNOWN INDICATION
     Dosage: UNK
     Route: 065
  5. TERCIAN [Suspect]
     Active Substance: CYAMEMAZINE
     Indication: PRODUCT USED FOR UNKNOWN INDICATION
     Dosage: UNK
     Route: 065
  6. MIANSERIN [Suspect]
     Active Substance: MIANSERIN
     Indication: PRODUCT USED FOR UNKNOWN INDICATION
     Dosage: UNK
     Route: 065
  7. NORDAZ [Suspect]
     Active Substance: NORDAZEPAM
     Indication: PRODUCT USED FOR UNKNOWN INDICATION
     Dosage: UNK
     Route: 065
  8. THERALENE [Suspect]
     Active Substance: TRIMEPRAZINE
     Indication: PRODUCT USED FOR UNKNOWN INDICATION
     Dosage: UNK
     Route: 065

REACTIONS (8)
  - Toxicity to various agents [Fatal]
  - Overdose [Fatal]
  - Hepatic cirrhosis [Fatal]
  - Completed suicide [Fatal]
  - Cardiopulmonary failure [Fatal]
  - Pulmonary oedema [Fatal]
  - Altered state of consciousness [Unknown]
  - Cardiovascular disorder [Unknown]
